FAERS Safety Report 7681563-X (Version None)
Quarter: 2011Q3

REPORT INFORMATION
  Report Type: 
  Country: None (occurrence: None)
  Receive Date: 20110812
  Receipt Date: 20110728
  Transmission Date: 20111222
  Serious: Yes (Hospitalization)
  Sender: FDA-Public Use
  Company Number: US-JUTA GMBH-2011-12398

PATIENT
  Age: 64 Year
  Sex: Male

DRUGS (6)
  1. METOPROLOL TARTRATE [Suspect]
     Indication: ATRIAL FIBRILLATION
     Dosage: 50 MG, BID
     Route: 048
  2. DILTIAZEM HYDROCHOLORIDE [Suspect]
     Indication: ATRIAL FIBRILLATION
     Dosage: 120 MG, Q6H
  3. ASPIRIN [Suspect]
     Indication: PRODUCT USED FOR UNKNOWN INDICATION
     Dosage: 325 MG, UNK
  4. DILTIAZEM HYDROCHLORIDE [Suspect]
     Dosage: 60 MG, Q6H
  5. CLOPIDEGREL [Suspect]
     Indication: PRODUCT USED FOR UNKNOWN INDICATION
     Dosage: 75 MG, UNK
  6. DILTIAZEM HYDROCHOLORIDE [Suspect]
     Dosage: 30 MG, Q6H

REACTIONS (6)
  - UPPER GASTROINTESTINAL HAEMORRHAGE [None]
  - ILEUS PARALYTIC [None]
  - ATRIAL FIBRILLATION [None]
  - WHEEZING [None]
  - TROPONIN I INCREASED [None]
  - DRUG INEFFECTIVE FOR UNAPPROVED INDICATION [None]
